FAERS Safety Report 15034455 (Version 1)
Quarter: 2018Q2

REPORT INFORMATION
  Report Type: Spontaneous
  Country: US (occurrence: US)
  Receive Date: 20180620
  Receipt Date: 20180620
  Transmission Date: 20180711
  Serious: Yes (Hospitalization)
  Sender: FDA-Public Use
  Company Number: US-B.I. PHARMACEUTICALS,INC./RIDGEFIELD-2018-BI-030998

PATIENT
  Age: 79 Year
  Sex: Female

DRUGS (2)
  1. SPIRIVA RESPIMAT [Suspect]
     Active Substance: TIOTROPIUM BROMIDE
     Dosage: STRENGTH: 2.5 MCG;  ADMINISTRATION CORRECT? NR(NOT REPORTED); ACTION TAKEN: DOSE NOT CHANGED
     Route: 055
     Dates: start: 20180607
  2. SPIRIVA RESPIMAT [Suspect]
     Active Substance: TIOTROPIUM BROMIDE
     Indication: CHRONIC OBSTRUCTIVE PULMONARY DISEASE
     Route: 055
     Dates: start: 20160315, end: 2017

REACTIONS (4)
  - Dyspnoea [Unknown]
  - Pneumonia [Recovered/Resolved]
  - Blood glucose increased [Not Recovered/Not Resolved]
  - Oxygen consumption increased [Unknown]

NARRATIVE: CASE EVENT DATE: 2016
